FAERS Safety Report 5658490-2 (Version None)
Quarter: 2008Q1

REPORT INFORMATION
  Report Type: 
  Country: None (occurrence: None)
  Receive Date: 20080310
  Receipt Date: 20070215
  Transmission Date: 20080703
  Serious: No
  Sender: FDA-Public Use
  Company Number: US-BAYER-200710514BCC

PATIENT
  Age: 47 Year
  Sex: Male
  Weight: 79 kg

DRUGS (2)
  1. ALEVE [Suspect]
     Indication: INFLAMMATION
     Dosage: TOTAL DAILY DOSE: 880 MG  UNIT DOSE: 220 MG
     Route: 048
     Dates: start: 20070118, end: 20070201
  2. CENTRUM MULTIVITAMINS [Concomitant]

REACTIONS (1)
  - HEPATIC ENZYME INCREASED [None]
